FAERS Safety Report 8358391-5 (Version None)
Quarter: 2012Q2

REPORT INFORMATION
  Report Type: 
  Country: None (occurrence: None)
  Receive Date: 20120514
  Receipt Date: 20110630
  Transmission Date: 20120825
  Serious: Yes (Hospitalization)
  Sender: FDA-Public Use
  Company Number: US-ALEXION-A201100554

PATIENT
  Sex: Female

DRUGS (14)
  1. ARIXTRA [Concomitant]
     Dosage: UNK
  2. AMBIEN [Concomitant]
     Dosage: UNK
     Route: 048
  3. PREDNISONE [Concomitant]
     Dosage: UNK
     Route: 048
  4. XANAX [Concomitant]
     Indication: ANXIETY
     Dosage: UNK
     Route: 048
  5. LOMOTIL [Concomitant]
     Dosage: UNK
     Route: 048
  6. HYDROCODONE BITARTRATE [Concomitant]
     Dosage: UNK
     Route: 048
  7. PROMETHAZINE [Concomitant]
     Dosage: UNK
     Route: 048
  8. EXJADE [Concomitant]
     Dosage: UNK
  9. FLEXERIL [Concomitant]
     Dosage: UNK
     Route: 048
  10. PRILOSEC [Concomitant]
     Dosage: UNK
     Route: 048
  11. SOLIRIS [Suspect]
     Dosage: 1200 MG, Q2W
     Route: 042
  12. DILAUDID [Concomitant]
     Dosage: UNK
     Route: 048
  13. MS CONTIN [Concomitant]
     Dosage: UNK
     Route: 048
  14. CARVEDILOL [Concomitant]
     Dosage: UNK
     Route: 048

REACTIONS (7)
  - INFLUENZA LIKE ILLNESS [None]
  - PAIN [None]
  - PYREXIA [None]
  - HAEMOGLOBIN DECREASED [None]
  - OEDEMA PERIPHERAL [None]
  - HEADACHE [None]
  - ARTHRALGIA [None]
